FAERS Safety Report 22000883 (Version 2)
Quarter: 2023Q1

REPORT INFORMATION
  Report Type: Spontaneous
  Country: US (occurrence: US)
  Receive Date: 20230216
  Receipt Date: 20230321
  Transmission Date: 20230418
  Serious: No
  Sender: FDA-Public Use
  Company Number: US-JNJFOC-20230225394

PATIENT
  Sex: Male

DRUGS (9)
  1. RISPERDAL [Suspect]
     Active Substance: RISPERIDONE
     Indication: Psychotic disorder
     Route: 048
     Dates: start: 20050707, end: 20050712
  2. RISPERDAL [Suspect]
     Active Substance: RISPERIDONE
     Indication: Paranoia
     Route: 048
     Dates: start: 20060202, end: 20060302
  3. RISPERDAL [Suspect]
     Active Substance: RISPERIDONE
     Indication: Hallucination
     Dosage: ONE-HALF TABLET BY MOUTH AT BEDTIME
     Route: 048
     Dates: start: 20060418, end: 20070419
  4. RISPERDAL [Suspect]
     Active Substance: RISPERIDONE
     Dosage: ONE-HALF TABLET BY MOUTH AT BEDTIME
     Route: 048
     Dates: start: 20080108, end: 20090108
  5. RISPERDAL [Suspect]
     Active Substance: RISPERIDONE
     Dosage: QHS
     Route: 048
     Dates: start: 20110223, end: 20110224
  6. RISPERDAL CONSTA [Suspect]
     Active Substance: RISPERIDONE
     Indication: Affective disorder
     Route: 030
     Dates: start: 20120207, end: 20130207
  7. RISPERDAL CONSTA [Suspect]
     Active Substance: RISPERIDONE
     Route: 030
     Dates: start: 20130319, end: 20140320
  8. RISPERDAL CONSTA [Suspect]
     Active Substance: RISPERIDONE
  9. RISPERDAL CONSTA [Suspect]
     Active Substance: RISPERIDONE

REACTIONS (3)
  - Gynaecomastia [Unknown]
  - Off label use [Unknown]
  - Drug ineffective [Unknown]
